FAERS Safety Report 17291471 (Version 1)
Quarter: 2020Q1

REPORT INFORMATION
  Report Type: Spontaneous
  Country: US (occurrence: US)
  Receive Date: 20200121
  Receipt Date: 20200121
  Transmission Date: 20200409
  Serious: Yes (Hospitalization)
  Sender: FDA-Public Use
  Company Number: US-TEVA-2019-US-1003351

PATIENT

DRUGS (1)
  1. PACLITAXEL INJ USP 300MG/50ML VIAL 6MG/ML ACTAVIS [Suspect]
     Active Substance: PACLITAXEL
     Indication: NEOPLASM MALIGNANT
     Dosage: DOSE STRENGTH:  300MG/50ML?1 DF: 6 MG/ML
     Route: 065

REACTIONS (2)
  - Dyspnoea [Unknown]
  - Chest pain [Unknown]
